FAERS Safety Report 6000202-7 (Version None)
Quarter: 2008Q4

REPORT INFORMATION
  Report Type: 
  Country: None (occurrence: None)
  Receive Date: 20081215
  Receipt Date: 20081203
  Transmission Date: 20090506
  Serious: Yes (Other)
  Sender: FDA-Public Use
  Company Number: US-PFIZER INC-2008152675

PATIENT
  Sex: Male
  Weight: 87.075 kg

DRUGS (1)
  1. CHANTIX [Suspect]
     Indication: SMOKING CESSATION THERAPY
     Dosage: 1 MG, 2X/DAY
     Route: 048
     Dates: start: 20081015, end: 20081130

REACTIONS (5)
  - BIPOLAR DISORDER [None]
  - DELUSION [None]
  - HALLUCINATION [None]
  - HALLUCINATION, VISUAL [None]
  - THINKING ABNORMAL [None]
